FAERS Safety Report 6902387-4 (Version None)
Quarter: 2010Q3

REPORT INFORMATION
  Report Type: 
  Country: None (occurrence: None)
  Receive Date: 20100803
  Receipt Date: 20080519
  Transmission Date: 20110219
  Serious: No
  Sender: FDA-Public Use
  Company Number: US-PFIZER INC-2008023096

PATIENT
  Age: 43 Year
  Sex: Male

DRUGS (13)
  1. LYRICA [Suspect]
     Indication: NEURALGIA
     Dates: start: 20080201, end: 20080201
  2. LYRICA [Suspect]
     Indication: DIABETES MELLITUS
  3. LYRICA [Suspect]
     Indication: PAIN IN EXTREMITY
  4. LEXAPRO [Concomitant]
  5. CELEXA [Concomitant]
  6. TRAZODONE [Concomitant]
  7. LUNESTA [Concomitant]
  8. METFORMIN HCL [Concomitant]
  9. PROPECIA [Concomitant]
  10. CIPROFLOXACIN [Concomitant]
  11. CLONAZEPAM [Concomitant]
  12. TOPROL-XL [Concomitant]
  13. OXYCODONE [Concomitant]

REACTIONS (1)
  - BLOOD CREATINE PHOSPHOKINASE INCREASED [None]
